FAERS Safety Report 7141397-1 (Version None)
Quarter: 2010Q4

REPORT INFORMATION
  Report Type: 
  Country: None (occurrence: None)
  Receive Date: 20101203
  Receipt Date: 20101203
  Transmission Date: 20110411
  Serious: Yes (Hospitalization)
  Sender: FDA-Public Use
  Company Number: None

PATIENT
  Age: 63 Year
  Sex: Male
  Weight: 79 kg

DRUGS (1)
  1. METFORMIN HCL [Suspect]
     Dosage: 1 GM BID PO
     Route: 048
     Dates: start: 20090219, end: 20101129

REACTIONS (8)
  - DEHYDRATION [None]
  - HYPERGLYCAEMIC HYPEROSMOLAR NONKETOTIC SYNDROME [None]
  - HYPOTENSION [None]
  - INFECTION [None]
  - LACTIC ACIDOSIS [None]
  - METABOLIC ACIDOSIS [None]
  - NEOPLASM MALIGNANT [None]
  - RENAL FAILURE ACUTE [None]
